FAERS Safety Report 5942391-6 (Version None)
Quarter: 2008Q4

REPORT INFORMATION
  Report Type: 
  Country: None (occurrence: None)
  Receive Date: 20081103
  Receipt Date: 20081023
  Transmission Date: 20090506
  Serious: Yes (Death, Other)
  Sender: FDA-Public Use
  Company Number: GXKR2008GB08415

PATIENT
  Age: 70 Year
  Sex: Female
  Weight: 60 kg

DRUGS (3)
  1. FLUOXETINE [Suspect]
     Indication: DEPRESSION
     Dosage: 60 MG, ORAL
     Route: 048
     Dates: start: 20070201
  2. LANSOPRAZOLE [Concomitant]
  3. MAGNESIUM (MAGNESIUM) [Concomitant]

REACTIONS (5)
  - ANTIDEPRESSANT DRUG LEVEL ABOVE THERAPEUTIC [None]
  - CONFUSIONAL STATE [None]
  - MALAISE [None]
  - OVERDOSE [None]
  - PNEUMONIA ASPIRATION [None]
